FAERS Safety Report 13370747 (Version 1)
Quarter: 2017Q1

REPORT INFORMATION
  Report Type: Spontaneous
  Country: US (occurrence: US)
  Receive Date: 20170324
  Receipt Date: 20170324
  Transmission Date: 20170429
  Serious: Yes (Other)
  Sender: FDA-Public Use
  Company Number: US-PFIZER INC-2017120675

PATIENT
  Age: 54 Year
  Sex: Male

DRUGS (4)
  1. ZOLOFT [Suspect]
     Active Substance: SERTRALINE HYDROCHLORIDE
     Indication: DEPRESSION
     Dosage: UNK UNK, 1X/DAY
     Route: 048
     Dates: end: 2010
  2. ZOLOFT [Suspect]
     Active Substance: SERTRALINE HYDROCHLORIDE
     Dosage: 450 MG, UNK
     Route: 048
     Dates: start: 20100718
  3. ZOLOFT [Suspect]
     Active Substance: SERTRALINE HYDROCHLORIDE
     Dosage: 150 MG, UNK
     Route: 048
  4. ADVAIR DISKUS [Concomitant]
     Active Substance: FLUTICASONE PROPIONATE\SALMETEROL XINAFOATE
     Indication: ASTHMA
     Dosage: UNK UNK, 2X/DAY (DOSE: 250/50 NOT IN MILLIGRAMS)
     Route: 055
     Dates: start: 2008

REACTIONS (17)
  - Cough [Not Recovered/Not Resolved]
  - Akathisia [Unknown]
  - Memory impairment [Not Recovered/Not Resolved]
  - Respiratory disorder [Unknown]
  - Condition aggravated [Not Recovered/Not Resolved]
  - Vomiting [Recovered/Resolved]
  - Overdose [Unknown]
  - Bronchospasm [Not Recovered/Not Resolved]
  - Chills [Unknown]
  - Hyperhidrosis [Unknown]
  - Tremor [Unknown]
  - Dyspnoea [Not Recovered/Not Resolved]
  - Cognitive disorder [Unknown]
  - Drug dispensing error [Unknown]
  - Asthma [Not Recovered/Not Resolved]
  - Heart rate increased [Unknown]
  - Movement disorder [Not Recovered/Not Resolved]

NARRATIVE: CASE EVENT DATE: 201007
